FAERS Safety Report 4996091-X (Version None)
Quarter: 2006Q2

REPORT INFORMATION
  Report Type: 
  Country: None (occurrence: None)
  Receive Date: 20060508
  Receipt Date: 20051123
  Transmission Date: 20061013
  Serious: Yes (Hospitalization)
  Sender: FDA-Public Use
  Company Number: US-MERCK-0511USA04440

PATIENT
  Age: 65 Year
  Sex: Male
  Weight: 77 kg

DRUGS (19)
  1. VIOXX [Suspect]
     Indication: ARTHRALGIA
     Route: 048
     Dates: start: 20000522, end: 20040930
  2. VIOXX [Suspect]
     Indication: INFLAMMATION
     Route: 048
     Dates: start: 20000522, end: 20040930
  3. MOTRIN [Concomitant]
     Indication: PAIN
     Route: 065
     Dates: start: 19800101
  4. TYLENOL (CAPLET) [Concomitant]
     Indication: PAIN
     Route: 065
     Dates: start: 19800101
  5. HYDROCODONE BITARTRATE + ACETAMINOPHEN [Concomitant]
     Route: 065
  6. RANITIDINE-BC [Concomitant]
     Indication: ABDOMINAL PAIN UPPER
     Route: 065
  7. BISOPROLOL RATIOPHARM [Concomitant]
     Route: 065
  8. TRIDERM (TRIAMCINOLONE ACETONIDE) [Concomitant]
     Route: 065
  9. XANAX [Concomitant]
     Route: 065
  10. OXYCODONE [Concomitant]
     Route: 065
  11. WELLBUTRIN [Concomitant]
     Route: 065
  12. TRAZODONE HYDROCHLORIDE [Concomitant]
     Route: 065
  13. ACETAMINOPHEN AND PROPOXYPHENE NAPSYLATE [Concomitant]
     Indication: BACK PAIN
     Route: 065
  14. ACETAMINOPHEN AND PROPOXYPHENE NAPSYLATE [Concomitant]
     Indication: ARTHRALGIA
     Route: 065
  15. CLONAZEPAM [Concomitant]
     Route: 065
  16. ULTRACET [Concomitant]
     Route: 065
  17. PIROXICAM [Concomitant]
     Route: 065
  18. ZITHROMAX [Concomitant]
     Route: 065
  19. LEVAQUIN [Concomitant]
     Route: 065

REACTIONS (7)
  - CEREBROVASCULAR ACCIDENT [None]
  - DEPRESSION [None]
  - HERNIA [None]
  - HYPERLIPIDAEMIA [None]
  - HYPERTENSION [None]
  - INTERVERTEBRAL DISC DEGENERATION [None]
  - LACUNAR INFARCTION [None]
